FAERS Safety Report 7847201-8 (Version None)
Quarter: 2011Q4

REPORT INFORMATION
  Report Type: 
  Country: None (occurrence: None)
  Receive Date: 20111025
  Receipt Date: 20110721
  Transmission Date: 20120403
  Serious: No
  Sender: FDA-Public Use
  Company Number: US-ALLERGAN-1109846US

PATIENT
  Age: 70 Year
  Sex: Female

DRUGS (1)
  1. FML [Suspect]
     Indication: SWELLING FACE
     Dosage: ONE APPLICATION
     Dates: start: 20110719, end: 20110719

REACTIONS (1)
  - VISION BLURRED [None]
